FAERS Safety Report 4509100-9 (Version None)
Quarter: 2004Q4

REPORT INFORMATION
  Report Type: 
  Country: None (occurrence: None)
  Receive Date: 20041025
  Receipt Date: 20030827
  Transmission Date: 20050328
  Serious: Yes (Other)
  Sender: FDA-Public Use
  Company Number: NSADSS2003024440

PATIENT
  Age: 71 Year
  Sex: Female
  Weight: 58.0604 kg

DRUGS (8)
  1. REMICADE [Suspect]
     Indication: RHEUMATOID ARTHRITIS
     Dosage: 200 MG, 1 IN 1 AS NECESSARY, INTRAVENOUS DRIP
     Route: 041
     Dates: start: 20000224, end: 20000224
  2. REMICADE [Suspect]
     Indication: RHEUMATOID ARTHRITIS
     Dosage: 200 MG, 1 IN 1 AS NECESSARY, INTRAVENOUS DRIP
     Route: 041
     Dates: start: 20030324, end: 20030324
  3. CELEBREX [Concomitant]
  4. METROTREXATE (METHOTREXATE) INJECTION [Concomitant]
  5. FOSAMAX (ALANDRONATE SODIUM) [Concomitant]
  6. FOIC ACID (FOLIC ACID) TABLETS [Concomitant]
  7. PROTONIX [Concomitant]
  8. PREMPO (PREMARIN PLUS) TABLETS [Concomitant]

REACTIONS (1)
  - NON-HODGKIN'S LYMPHOMA [None]
